FAERS Safety Report 8082973-1 (Version None)
Quarter: 2012Q1

REPORT INFORMATION
  Report Type: 
  Country: None (occurrence: None)
  Receive Date: 20120127
  Receipt Date: 20110307
  Transmission Date: 20120608
  Serious: No
  Sender: FDA-Public Use
  Company Number: US-ABBOTT-11P-163-0710447-00

PATIENT
  Sex: Female
  Weight: 50.848 kg

DRUGS (2)
  1. HUMIRA [Suspect]
     Route: 058
     Dates: start: 20110201, end: 20110201
  2. HUMIRA [Suspect]
     Indication: CROHN'S DISEASE
     Route: 058
     Dates: start: 20080101, end: 20110201

REACTIONS (5)
  - DEFAECATION URGENCY [None]
  - CROHN'S DISEASE [None]
  - HAEMATOCHEZIA [None]
  - NASOPHARYNGITIS [None]
  - DIARRHOEA [None]
